FAERS Safety Report 22605176 (Version 1)
Quarter: 2023Q2

REPORT INFORMATION
  Report Type: Spontaneous
  Country: US (occurrence: US)
  Receive Date: 20230615
  Receipt Date: 20230615
  Transmission Date: 20230722
  Serious: No
  Sender: FDA-Public Use
  Company Number: US-BIOGEN-2023BI01198640

PATIENT
  Sex: Female

DRUGS (1)
  1. TYSABRI [Suspect]
     Active Substance: NATALIZUMAB
     Indication: Multiple sclerosis
     Route: 050
     Dates: start: 20181228

REACTIONS (13)
  - Back pain [Unknown]
  - Swelling of eyelid [Unknown]
  - Eyelid skin dryness [Unknown]
  - Erythema of eyelid [Unknown]
  - Rash [Unknown]
  - Hypersensitivity [Unknown]
  - Fatigue [Unknown]
  - Urinary tract infection [Unknown]
  - Arthralgia [Unknown]
  - Pain in extremity [Unknown]
  - Muscle spasms [Unknown]
  - Peripheral swelling [Unknown]
  - Joint swelling [Unknown]

NARRATIVE: CASE EVENT DATE: 20220101
